FAERS Safety Report 22534076 (Version 1)
Quarter: 2023Q2

REPORT INFORMATION
  Report Type: Report from Study
  Country: CL (occurrence: CL)
  Receive Date: 20230608
  Receipt Date: 20230608
  Transmission Date: 20230722
  Serious: Yes (Other)
  Sender: FDA-Public Use
  Company Number: CL-002147023-NVSC2023CL111261

PATIENT
  Age: 58 Year
  Sex: Male

DRUGS (3)
  1. METHOTREXATE [Suspect]
     Active Substance: METHOTREXATE
     Indication: Product used for unknown indication
     Dosage: UNK (TWO IN THE MORNING AND TWO IN THE AFTERNOON)
     Route: 065
  2. CELECOXIB [Suspect]
     Active Substance: CELECOXIB
     Indication: Product used for unknown indication
     Dosage: UNK
     Route: 065
  3. PREVNAR 13 [Suspect]
     Active Substance: PNEUMOCOCCAL 13-VALENT CONJUGATE VACCINE
     Indication: Pneumococcal infection
     Dosage: UNK
     Route: 065

REACTIONS (14)
  - Pyrexia [Unknown]
  - Delirium febrile [Unknown]
  - Chills [Unknown]
  - Malaise [Unknown]
  - Pain in extremity [Unknown]
  - Back pain [Unknown]
  - Psoriasis [Unknown]
  - Skin disorder [Unknown]
  - Dandruff [Unknown]
  - Scab [Unknown]
  - Depression [Unknown]
  - Movement disorder [Unknown]
  - Anxiety [Unknown]
  - Drug ineffective [Unknown]
